FAERS Safety Report 10196147 (Version 1)
Quarter: 2014Q2

REPORT INFORMATION
  Report Type: Spontaneous
  Country: IT (occurrence: IT)
  Receive Date: 20140527
  Receipt Date: 20140527
  Transmission Date: 20141212
  Serious: Yes (Death, Life-Threatening, Other)
  Sender: FDA-Public Use
  Company Number: IT-CELGENEUS-083-50794-14052329

PATIENT
  Sex: 0

DRUGS (2)
  1. VIDAZA [Suspect]
     Indication: MYELODYSPLASTIC SYNDROME
     Dosage: 75 MILLIGRAM/SQ. METER
     Route: 058
  2. VIDAZA [Suspect]
     Indication: ACUTE MYELOID LEUKAEMIA

REACTIONS (14)
  - Infection [Fatal]
  - Ischaemia [Fatal]
  - Respiratory failure [Fatal]
  - Haemorrhage [Unknown]
  - Amyloidosis [Unknown]
  - Haemoglobin decreased [Unknown]
  - Neoplasm [Unknown]
  - Treatment failure [Unknown]
  - Neutrophil count decreased [Unknown]
  - Disease progression [Unknown]
  - Platelet count decreased [Unknown]
  - Nausea [Unknown]
  - Constipation [Unknown]
  - Diarrhoea [Unknown]
